FAERS Safety Report 26090555 (Version 1)
Quarter: 2025Q4

REPORT INFORMATION
  Report Type: Spontaneous
  Country: US (occurrence: US)
  Receive Date: 20251126
  Receipt Date: 20251126
  Transmission Date: 20260117
  Serious: Yes (Other)
  Sender: BEIGENE
  Company Number: US-BEONE MEDICINES-BGN-2025-020599

PATIENT
  Age: 68 Year
  Sex: Male

DRUGS (2)
  1. BRUKINSA [Suspect]
     Active Substance: ZANUBRUTINIB
     Indication: Mantle cell lymphoma stage IV
  2. VENCLEXTA [Concomitant]
     Active Substance: VENETOCLAX
     Indication: Mantle cell lymphoma stage IV

REACTIONS (3)
  - Diabetes mellitus [Unknown]
  - Erectile dysfunction [Unknown]
  - Mental disorder [Unknown]
